FAERS Safety Report 20195331 (Version 1)
Quarter: 2021Q4

REPORT INFORMATION
  Report Type: Spontaneous
  Country: FR (occurrence: FR)
  Receive Date: 20211216
  Receipt Date: 20211216
  Transmission Date: 20220304
  Serious: Yes (Death, Other)
  Sender: FDA-Public Use
  Company Number: FR-ALXN-A202113602

PATIENT
  Age: 56 Year
  Sex: Male

DRUGS (4)
  1. SOLIRIS [Suspect]
     Active Substance: ECULIZUMAB
     Indication: Haemolytic uraemic syndrome
     Dosage: UNK, SINGLE
     Route: 065
     Dates: start: 202007
  2. SOLIRIS [Suspect]
     Active Substance: ECULIZUMAB
     Indication: Off label use
  3. MYCOPHENOLATE MOFETIL [Concomitant]
     Active Substance: MYCOPHENOLATE MOFETIL
     Indication: Product used for unknown indication
     Route: 065
  4. TACROLIMUS [Concomitant]
     Active Substance: TACROLIMUS
     Indication: Product used for unknown indication
     Route: 065

REACTIONS (10)
  - Intestinal ischaemia [Fatal]
  - Respiratory failure [Fatal]
  - Cardiac arrest [Unknown]
  - Pseudomonal bacteraemia [Unknown]
  - Epilepsy [Unknown]
  - Pneumonia haemophilus [Unknown]
  - Aortic dissection [Unknown]
  - Pericardial haemorrhage [Unknown]
  - Cardiac tamponade [Unknown]
  - Off label use [Unknown]

NARRATIVE: CASE EVENT DATE: 20200701
